FAERS Safety Report 10481024 (Version 2)
Quarter: 2014Q4

REPORT INFORMATION
  Report Type: Spontaneous
  Country: US (occurrence: None)
  Receive Date: 20140924
  Receipt Date: 20141215
  Transmission Date: 20150528
  Serious: Yes (Life-Threatening, Hospitalization)
  Sender: FDA-Public Use
  Company Number: 1713747-2014-99929

PATIENT
  Age: 75 Year
  Sex: Female
  Weight: 124 kg

DRUGS (19)
  1. DIALYZER [Concomitant]
  2. 0.9% SODIUM CHLORIDE INJECTION [Suspect]
     Active Substance: SODIUM CHLORIDE
     Indication: CHRONIC KIDNEY DISEASE
     Dosage: HEMODIALYSIS
     Route: 010
     Dates: start: 20091216
  3. NATURALYTE [Concomitant]
     Active Substance: ACETIC ACID\SODIUM ACETATE
  4. GRANUFLO [Concomitant]
     Active Substance: ACETIC ACID\SODIUM ACETATE
  5. AUGMENTIN [Concomitant]
     Active Substance: AMOXICILLIN\CLAVULANATE POTASSIUM
  6. PYSTOLIC [Concomitant]
  7. FRESNIUS 2008K [Concomitant]
  8. LASIX [Concomitant]
     Active Substance: FUROSEMIDE
  9. HYDRALAZINE [Concomitant]
     Active Substance: HYDRALAZINE HYDROCHLORIDE
  10. SIMVASTATIN. [Concomitant]
     Active Substance: SIMVASTATIN
  11. MAG-TAB SR [Concomitant]
     Active Substance: MAGNESIUM LACTATE
  12. NOVOLOG INSULIN 26 UNITS [Concomitant]
  13. SALINE [Concomitant]
     Active Substance: SODIUM CHLORIDE
  14. PLAVIX [Concomitant]
     Active Substance: CLOPIDOGREL BISULFATE
  15. COMBISET [Concomitant]
  16. ZEMPLAR [Concomitant]
     Active Substance: PARICALCITOL
  17. EPOGEN [Concomitant]
     Active Substance: ERYTHROPOIETIN
  18. NOVOLOG INSULIN 22 UNITS [Concomitant]
  19. VENOFER [Concomitant]
     Active Substance: IRON SUCROSE

REACTIONS (10)
  - Hypoxic-ischaemic encephalopathy [None]
  - Acute myocardial infarction [None]
  - Arteriosclerosis coronary artery [None]
  - Cardio-respiratory arrest [None]
  - Hypoglycaemia [None]
  - Cardiac arrest [None]
  - Brain injury [None]
  - Status epilepticus [None]
  - Blood pressure decreased [None]
  - Arrhythmia [None]

NARRATIVE: CASE EVENT DATE: 20091216
